FAERS Safety Report 5371427-9 (Version None)
Quarter: 2007Q2

REPORT INFORMATION
  Report Type: 
  Country: None (occurrence: None)
  Receive Date: 20070622
  Receipt Date: 20070608
  Transmission Date: 20071010
  Serious: Yes (Hospitalization)
  Sender: FDA-Public Use
  Company Number: 155323USA

PATIENT
  Age: 75 Year
  Sex: Male
  Weight: 79.3795 kg

DRUGS (13)
  1. AZILECT [Suspect]
     Indication: PARKINSON'S DISEASE
     Dosage: 1 MG (1 MG, 1 IN 1 D), ORAL
     Route: 048
     Dates: start: 20070202, end: 20070403
  2. PIROXICAM [Concomitant]
  3. GLUCOSAMINE [Concomitant]
  4. ACETYLSALICYLIC ACID SRT [Concomitant]
  5. ESOMEPRAZOLE MAGNESIUM [Concomitant]
  6. LISINOPRIL [Concomitant]
  7. ATENOLOL [Concomitant]
  8. FINASTERIDE [Concomitant]
  9. MORNIFLUMATE [Concomitant]
  10. ALFUZOSIN HYDROCHLORIDE [Concomitant]
  11. VITAMIN CAP [Concomitant]
  12. VITAMIN C AND E [Concomitant]
  13. MELOXICAM [Concomitant]

REACTIONS (5)
  - BLOOD URINE PRESENT [None]
  - URINARY HESITATION [None]
  - URINARY RETENTION [None]
  - URINARY TRACT INFECTION [None]
  - URINARY TRACT OBSTRUCTION [None]
